FAERS Safety Report 12923947 (Version 2)
Quarter: 2017Q1

REPORT INFORMATION
  Report Type: Spontaneous
  Country: US (occurrence: US)
  Receive Date: 20161109
  Receipt Date: 20170203
  Transmission Date: 20170428
  Serious: No
  Sender: FDA-Public Use
  Company Number: US-SHIRE-US201616631

PATIENT
  Age: 66 Year
  Sex: Female

DRUGS (1)
  1. XIIDRA [Suspect]
     Active Substance: LIFITEGRAST
     Indication: DRY EYE
     Dosage: 1 GTT (1 DROP BOTH EYES), 2X/DAY:BID
     Route: 047
     Dates: start: 20161013, end: 20161202

REACTIONS (4)
  - Palpitations [Recovered/Resolved]
  - Instillation site pain [Recovered/Resolved]
  - Eye swelling [Unknown]
  - Hypersensitivity [Unknown]

NARRATIVE: CASE EVENT DATE: 2016
